FAERS Safety Report 5917299-2 (Version None)
Quarter: 2008Q4

REPORT INFORMATION
  Report Type: 
  Country: None (occurrence: None)
  Receive Date: 20081009
  Receipt Date: 20081009
  Transmission Date: 20090506
  Serious: No
  Sender: FDA-Public Use
  Company Number: None

PATIENT
  Age: 26 Year
  Sex: Female

DRUGS (1)
  1. MEDROXYPROGESTERONE [Suspect]
     Indication: PREGNANCY WITH INJECTABLE CONTRACEPTIVE
     Dosage: 150 MG OTHER
     Route: 050
     Dates: start: 20060730, end: 20080407

REACTIONS (2)
  - PREGNANCY WITH INJECTABLE CONTRACEPTIVE [None]
  - UNINTENDED PREGNANCY [None]
